FAERS Safety Report 7952958-1 (Version None)
Quarter: 2011Q4

REPORT INFORMATION
  Report Type: 
  Country: None (occurrence: None)
  Receive Date: 20111201
  Receipt Date: 20111124
  Transmission Date: 20120403
  Serious: Yes (Other)
  Sender: FDA-Public Use
  Company Number: PHHY2011DE59124

PATIENT
  Sex: Female

DRUGS (7)
  1. ESTRADERM [Suspect]
     Dosage: 25 UG/HR
     Route: 062
     Dates: end: 20110601
  2. UTROGEST [Concomitant]
     Dosage: IN THE EVENING
     Route: 067
  3. PROGESTERON SALVE [Concomitant]
     Indication: HORMONE REPLACEMENT THERAPY
     Dosage: IN THE MORNING
  4. LEVOTHYROXINE SODIUM [Concomitant]
  5. UTROGEST [Concomitant]
     Indication: HORMONE REPLACEMENT THERAPY
     Route: 003
  6. MIRENA [Concomitant]
     Indication: CONTRACEPTION
     Route: 015
  7. ESTRADERM [Suspect]
     Indication: HORMONE REPLACEMENT THERAPY
     Dosage: 37.5/24 UG/HR
     Route: 062

REACTIONS (3)
  - METRORRHAGIA [None]
  - UTERINE LEIOMYOMA [None]
  - DRUG LEVEL FLUCTUATING [None]
